FAERS Safety Report 20869402 (Version 1)
Quarter: 2022Q2

REPORT INFORMATION
  Report Type: Spontaneous
  Country: IR (occurrence: IR)
  Receive Date: 20220524
  Receipt Date: 20220524
  Transmission Date: 20220720
  Serious: Yes (Hospitalization)
  Sender: FDA-Public Use
  Company Number: IR-PRINSTON PHARMACEUTICAL INC.-2022PRN00176

PATIENT
  Age: 36 Year
  Sex: Female

DRUGS (1)
  1. METFORMIN HYDROCHLORIDE [Suspect]
     Active Substance: METFORMIN HYDROCHLORIDE
     Indication: Weight decreased
     Dosage: 20-30 500 MG ^PILLS^ DAILY
     Route: 065

REACTIONS (13)
  - Cardiogenic shock [Recovered/Resolved]
  - Respiratory distress [Recovered/Resolved]
  - Ejection fraction decreased [Recovered/Resolved]
  - Lactic acidosis [Recovered/Resolved]
  - Acute kidney injury [Recovering/Resolving]
  - Anaemia megaloblastic [Unknown]
  - Pancytopenia [Recovering/Resolving]
  - Hyponatraemia [Recovered/Resolved]
  - Pleural effusion [Unknown]
  - Cardiomegaly [Unknown]
  - Overdose [Recovered/Resolved]
  - Drug abuse [Recovered/Resolved]
  - Toxicity to various agents [Recovered/Resolved]
